FAERS Safety Report 5970917-5 (Version None)
Quarter: 2008Q4

REPORT INFORMATION
  Report Type: 
  Country: None (occurrence: None)
  Receive Date: 20081128
  Receipt Date: 20081118
  Transmission Date: 20090506
  Serious: Yes (Other)
  Sender: FDA-Public Use
  Company Number: PHBS2008US06421

PATIENT
  Age: 71 Year
  Sex: Male

DRUGS (14)
  1. HYDRALAZINE HCL [Suspect]
  2. METOPROLOL TARTRATE [Suspect]
  3. POLYETHYLENE GLYCOL [Concomitant]
  4. LEVOTHYROXINE SODIUM [Concomitant]
  5. ISOSORBIDE MONONITRATE [Concomitant]
  6. DARBEPOTIN [Concomitant]
  7. FISH OIL [Concomitant]
  8. CALCIUM [Concomitant]
  9. BUMETANIDE [Concomitant]
  10. REPAGLINIDE [Concomitant]
  11. ROSIGLITAZONE [Concomitant]
  12. LAXATIVES [Concomitant]
  13. CLONIDINE [Concomitant]
  14. FERROUS SULFATE TAB [Suspect]
     Indication: ANAEMIA

REACTIONS (7)
  - ABDOMINAL PAIN [None]
  - COLONOSCOPY [None]
  - ENDOSCOPY UPPER GASTROINTESTINAL TRACT ABNORMAL [None]
  - GASTRITIS [None]
  - HIATUS HERNIA [None]
  - HYPERPLASIA [None]
  - MELANOSIS COLI [None]
